FAERS Safety Report 15897781 (Version 10)
Quarter: 2020Q2

REPORT INFORMATION
  Report Type: Report from Study
  Country: JP (occurrence: JP)
  Receive Date: 20190201
  Receipt Date: 20200415
  Transmission Date: 20200713
  Serious: Yes (Hospitalization, Other)
  Sender: FDA-Public Use
  Company Number: JP-BRISTOL-MYERS SQUIBB COMPANY-BMS-2019-009613

PATIENT
  Age: 75 Year
  Sex: Male
  Weight: 45.25 kg

DRUGS (1)
  1. NIVOLUMAB [Suspect]
     Active Substance: NIVOLUMAB
     Indication: HEAD AND NECK CANCER
     Dosage: 138 MILLIGRAM
     Route: 041
     Dates: start: 20171212, end: 20171212

REACTIONS (3)
  - Prescribed overdose [Unknown]
  - Hepatitis [Unknown]
  - Hepatic fibrosis [Unknown]
